FAERS Safety Report 16146076 (Version 1)
Quarter: 2019Q2

REPORT INFORMATION
  Report Type: Spontaneous
  Country: IT (occurrence: IT)
  Receive Date: 20190402
  Receipt Date: 20190402
  Transmission Date: 20190711
  Serious: Yes (Life-Threatening)
  Sender: FDA-Public Use
  Company Number: IT-ACCORD-117144

PATIENT
  Age: 83 Year
  Sex: Male

DRUGS (3)
  1. EFEXOR [Concomitant]
     Active Substance: VENLAFAXINE HYDROCHLORIDE
  2. DEPAKIN [Concomitant]
     Active Substance: VALPROATE SODIUM
  3. QUETIAPINE ACCORD [Suspect]
     Active Substance: QUETIAPINE
     Indication: SCHIZOAFFECTIVE DISORDER
     Dosage: STRENGTH :200 MG

REACTIONS (2)
  - Deficiency anaemia [Unknown]
  - Cytopenia [Unknown]

NARRATIVE: CASE EVENT DATE: 20180701
